FAERS Safety Report 18026848 (Version 6)
Quarter: 2021Q1

REPORT INFORMATION
  Report Type: Spontaneous
  Country: US (occurrence: US)
  Receive Date: 20200715
  Receipt Date: 20210128
  Transmission Date: 20210419
  Serious: Yes (Other)
  Sender: FDA-Public Use
  Company Number: US-INCYTE CORPORATION-2020IN006465

PATIENT

DRUGS (8)
  1. JAKAFI [Suspect]
     Active Substance: RUXOLITINIB
     Dosage: 15 MILLIGRAM
     Route: 065
  2. CITALOPRAM HYDROBROMIDE. [Concomitant]
     Active Substance: CITALOPRAM HYDROBROMIDE
     Indication: PRODUCT USED FOR UNKNOWN INDICATION
     Dosage: UNK
     Route: 065
  3. CLONAZEPAM. [Concomitant]
     Active Substance: CLONAZEPAM
     Indication: PRODUCT USED FOR UNKNOWN INDICATION
     Route: 065
  4. JAKAFI [Suspect]
     Active Substance: RUXOLITINIB
     Indication: ESSENTIAL THROMBOCYTHAEMIA
     Dosage: 10 MILLIGRAM, BID
     Route: 048
     Dates: start: 20200703
  5. JAKAFI [Suspect]
     Active Substance: RUXOLITINIB
     Dosage: 15 MILLIGRAM, BID
     Route: 048
     Dates: start: 20200703
  6. JAKAFI [Suspect]
     Active Substance: RUXOLITINIB
     Dosage: 15 MILLIGRAM, BID
     Route: 048
     Dates: start: 20200703
  7. AGRYLIN [Concomitant]
     Active Substance: ANAGRELIDE HYDROCHLORIDE
     Indication: PRODUCT USED FOR UNKNOWN INDICATION
     Route: 065
  8. JAKAFI [Suspect]
     Active Substance: RUXOLITINIB
     Dosage: 15 MILLIGRAM, BID
     Route: 048
     Dates: start: 20200703

REACTIONS (23)
  - Feeling abnormal [Unknown]
  - Dizziness [Unknown]
  - Flatulence [Unknown]
  - Gastroenteritis viral [Recovering/Resolving]
  - Depression [Recovering/Resolving]
  - Headache [Unknown]
  - White blood cell count increased [Recovered/Resolved]
  - Listless [Recovering/Resolving]
  - Decreased activity [Recovering/Resolving]
  - Off label use [Unknown]
  - Product availability issue [Unknown]
  - Anaemia [Unknown]
  - Abdominal pain upper [Recovering/Resolving]
  - Hypophagia [Recovering/Resolving]
  - Haematemesis [Recovering/Resolving]
  - Insomnia [Unknown]
  - Limb discomfort [Unknown]
  - Nervousness [Recovering/Resolving]
  - Diarrhoea [Recovering/Resolving]
  - Gastric haemorrhage [Unknown]
  - Anger [Recovering/Resolving]
  - Cardiac disorder [Recovering/Resolving]
  - Therapy interrupted [Unknown]

NARRATIVE: CASE EVENT DATE: 20200703
